FAERS Safety Report 8911163 (Version 1)
Quarter: 2012Q4

REPORT INFORMATION
  Report Type: 
  Country: US (occurrence: US)
  Receive Date: 20121116
  Receipt Date: 20121116
  Transmission Date: 20130627
  Serious: No
  Sender: FDA-Public Use
  Company Number: US-GLAXOSMITHKLINE-A0988510A

PATIENT
  Age: 52 Year
  Sex: Male
  Weight: 117.7 kg

DRUGS (6)
  1. VOTRIENT [Suspect]
     Indication: PRODUCT USED FOR UNKNOWN INDICATION
     Dosage: 200MG See dosage text
     Route: 048
  2. C-PAP [Concomitant]
     Indication: SLEEP APNOEA SYNDROME
  3. ADVIL [Concomitant]
  4. JANUVIA [Concomitant]
     Route: 065
  5. METFORMIN [Concomitant]
     Route: 065
  6. LISINOPRIL [Concomitant]
     Route: 065

REACTIONS (5)
  - Glossodynia [Unknown]
  - Dysgeusia [Unknown]
  - Eating disorder [Unknown]
  - Dry skin [Unknown]
  - Fatigue [Unknown]
